FAERS Safety Report 9990298 (Version 1)
Quarter: 2014Q1

REPORT INFORMATION
  Report Type: Spontaneous
  Country: US (occurrence: None)
  Receive Date: 20140123
  Receipt Date: 20140123
  Transmission Date: 20141002
  Serious: Yes (Hospitalization)
  Sender: FDA-Public Use
  Company Number: UTC-034753

PATIENT
  Age: 84 Year
  Sex: Female
  Weight: 68.2 kg

DRUGS (3)
  1. REMODULIN (10 MILLIGRAM/MILLILITERS, INJECTION FOR INFUSION) (TREPROSTINIL SODIUM) [Suspect]
     Indication: COR PULMONALE CHRONIC
     Dosage: 79.2 UG/KG (0.055 UG/KG, 1 IN 1 MIN), SUBCUTANEOUS
     Dates: start: 20090904
  2. REVATIO (SILDENAFIL CITRATE) [Concomitant]
  3. WARFARIN [Concomitant]

REACTIONS (2)
  - Infusion site erythema [None]
  - Infusion site induration [None]
